FAERS Safety Report 7030197-9 (Version None)
Quarter: 2010Q4

REPORT INFORMATION
  Report Type: 
  Country: None (occurrence: None)
  Receive Date: 20101006
  Receipt Date: 20101001
  Transmission Date: 20110411
  Serious: Yes (Death, Hospitalization)
  Sender: FDA-Public Use
  Company Number: JP-BAYER-201014829BYL

PATIENT
  Age: 77 Year
  Sex: Male
  Weight: 47 kg

DRUGS (17)
  1. NEXAVAR [Suspect]
     Indication: HEPATIC NEOPLASM MALIGNANT
     Dosage: UNIT DOSE: 200 MG
     Route: 048
     Dates: start: 20100903, end: 20100913
  2. MIRIPLATIN HYDRATE [Concomitant]
     Indication: THERAPEUTIC EMBOLISATION
     Route: 013
     Dates: start: 20100831, end: 20100831
  3. CISPLATIN [Concomitant]
     Indication: REGIONAL CHEMOTHERAPY
     Route: 013
     Dates: start: 20100726, end: 20100726
  4. CISPLATIN [Concomitant]
     Route: 013
     Dates: start: 20100816, end: 20100816
  5. FLUOROURACIL [Concomitant]
     Indication: REGIONAL CHEMOTHERAPY
     Route: 013
     Dates: start: 20100816, end: 20100816
  6. FLUOROURACIL [Concomitant]
     Route: 013
     Dates: start: 20100726, end: 20100726
  7. PYRIDOXAL [Concomitant]
     Route: 048
     Dates: start: 20100903
  8. UREPEARL [Concomitant]
     Route: 061
     Dates: start: 20100903
  9. LORFENAMIN [Concomitant]
     Route: 048
     Dates: start: 20100905
  10. PURSENNID [Concomitant]
     Route: 048
     Dates: start: 20100905
  11. LIVACT [Concomitant]
     Route: 048
     Dates: start: 20100511
  12. MOBIC [Concomitant]
     Route: 048
     Dates: start: 20100511
  13. PROMAC [Concomitant]
     Dosage: UNIT DOSE: 75 MG
     Route: 048
     Dates: start: 20100511
  14. PARIET [Concomitant]
     Route: 048
     Dates: start: 20100511
  15. LASIX [Concomitant]
     Route: 048
     Dates: start: 20100515
  16. BISOLVON [Concomitant]
     Route: 048
     Dates: start: 20100522
  17. SALOBEL [Concomitant]
     Route: 048
     Dates: start: 20100511

REACTIONS (1)
  - HEPATIC FUNCTION ABNORMAL [None]
